FAERS Safety Report 9324016 (Version 4)
Quarter: 2013Q4

REPORT INFORMATION
  Report Type: Report from Study
  Country: AU (occurrence: AU)
  Receive Date: 20130603
  Receipt Date: 20131014
  Transmission Date: 20140711
  Serious: Yes (Other)
  Sender: FDA-Public Use
  Company Number: AU-SANOFI-AVENTIS-2013SA053720

PATIENT
  Age: 27 Year
  Sex: Female

DRUGS (2)
  1. AUBAGIO [Suspect]
     Indication: MULTIPLE SCLEROSIS
     Route: 048
     Dates: start: 20121220
  2. LEVLEN [Concomitant]
     Indication: ORAL CONTRACEPTION
     Route: 065

REACTIONS (3)
  - Multiple sclerosis relapse [Unknown]
  - Muscular weakness [Recovered/Resolved]
  - Dysphagia [Recovered/Resolved]
